FAERS Safety Report 6559228-7 (Version None)
Quarter: 2010Q1

REPORT INFORMATION
  Report Type: 
  Country: None (occurrence: None)
  Receive Date: 20100129
  Receipt Date: 20100119
  Transmission Date: 20100710
  Serious: Yes (Other)
  Sender: FDA-Public Use
  Company Number: US-JNJCH-2010002346

PATIENT
  Sex: Female
  Weight: 56.7 kg

DRUGS (2)
  1. ROLAIDS TAB [Suspect]
     Indication: GASTROOESOPHAGEAL REFLUX DISEASE
     Dosage: TEXT:2 TABLETS
     Route: 048
     Dates: start: 20091101, end: 20091212
  2. ACIPHEX [Concomitant]
     Indication: GASTROOESOPHAGEAL REFLUX DISEASE
     Dosage: TEXT:UNSPECIFIED
     Route: 065

REACTIONS (10)
  - ABDOMINAL PAIN [None]
  - ADVERSE DRUG REACTION [None]
  - CHEST PAIN [None]
  - DIARRHOEA [None]
  - DYSPNOEA [None]
  - NAUSEA [None]
  - NERVOUSNESS [None]
  - OFF LABEL USE [None]
  - PANIC ATTACK [None]
  - VOMITING [None]
